FAERS Safety Report 20737586 (Version 2)
Quarter: 2022Q2

REPORT INFORMATION
  Report Type: Report from Study
  Country: AR (occurrence: AR)
  Receive Date: 20220422
  Receipt Date: 20220519
  Transmission Date: 20220721
  Serious: Yes (Hospitalization, Other)
  Sender: FDA-Public Use
  Company Number: AR-ABBVIE-22K-007-4366973-00

PATIENT
  Age: 67 Year
  Sex: Male

DRUGS (4)
  1. HUMIRA [Suspect]
     Active Substance: ADALIMUMAB
     Indication: Ankylosing spondylitis
     Route: 058
     Dates: start: 20190311
  2. IBUPROFEN [Suspect]
     Active Substance: IBUPROFEN
     Indication: Ankylosing spondylitis
     Route: 065
  3. IBUPROFEN [Suspect]
     Active Substance: IBUPROFEN
     Indication: Ankylosing spondylitis
     Route: 065
  4. DICLOFENAC [Suspect]
     Active Substance: DICLOFENAC
     Indication: Ankylosing spondylitis
     Route: 065

REACTIONS (5)
  - Intestinal haemorrhage [Recovered/Resolved]
  - Haematochezia [Recovered/Resolved]
  - Intestinal polyp [Unknown]
  - Haemorrhoids [Unknown]
  - Ankylosing spondylitis [Unknown]

NARRATIVE: CASE EVENT DATE: 20220301
